FAERS Safety Report 15415206 (Version 3)
Quarter: 2018Q4

REPORT INFORMATION
  Report Type: Report from Study
  Country: US (occurrence: US)
  Receive Date: 20180921
  Receipt Date: 20181024
  Transmission Date: 20190204
  Serious: Yes (Other)
  Sender: FDA-Public Use
  Company Number: PHEH2018US038998

PATIENT
  Age: 45 Year
  Sex: Female
  Weight: 56.2 kg

DRUGS (2)
  1. GILENYA [Suspect]
     Active Substance: FINGOLIMOD HYDROCHLORIDE
     Indication: MULTIPLE SCLEROSIS
     Dosage: 0.5 MG, QD
     Route: 048
     Dates: start: 2015, end: 20180801
  2. TAGRISSO [Suspect]
     Active Substance: OSIMERTINIB
     Indication: PRODUCT USED FOR UNKNOWN INDICATION
     Dosage: UNK
     Route: 065
     Dates: start: 20180110

REACTIONS (22)
  - Metastases to pelvis [Unknown]
  - Arthralgia [Recovering/Resolving]
  - Dehydration [Unknown]
  - Spinal column stenosis [Unknown]
  - Sensory loss [Unknown]
  - Diarrhoea [Unknown]
  - Muscular weakness [Recovering/Resolving]
  - Visual field defect [Unknown]
  - Pain in extremity [Unknown]
  - Spinal cord compression [Unknown]
  - Eye disorder [Not Recovered/Not Resolved]
  - Bone cancer [Unknown]
  - Brain neoplasm malignant [Unknown]
  - Scoliosis [Unknown]
  - Syncope [Unknown]
  - Vertebral foraminal stenosis [Unknown]
  - Thecal sac compression [Unknown]
  - Uterine leiomyoma [Unknown]
  - Lung cancer metastatic [Unknown]
  - Hypoaesthesia [Unknown]
  - Lung adenocarcinoma stage IV [Not Recovered/Not Resolved]
  - Metastases to spine [Unknown]

NARRATIVE: CASE EVENT DATE: 201802
